FAERS Safety Report 25596455 (Version 1)
Quarter: 2025Q3

REPORT INFORMATION
  Report Type: Report from Study
  Country: CA (occurrence: CA)
  Receive Date: 20250723
  Receipt Date: 20250723
  Transmission Date: 20251020
  Serious: Yes (Other)
  Sender: SAMSUNG BIOEPIS
  Company Number: CA-SAMSUNG BIOEPIS-SB-2025-24631

PATIENT
  Age: 38 Year
  Sex: Male

DRUGS (1)
  1. HADLIMA [Suspect]
     Active Substance: ADALIMUMAB-BWWD
     Indication: Colitis ulcerative
     Dosage: 40MG/0.4ML;
     Dates: start: 20210713

REACTIONS (4)
  - Syncope [Not Recovered/Not Resolved]
  - Loss of consciousness [Unknown]
  - Fear of injection [Unknown]
  - Off label use [Unknown]
